FAERS Safety Report 20811671 (Version 4)
Quarter: 2022Q2

REPORT INFORMATION
  Report Type: Report from Study
  Country: US (occurrence: US)
  Receive Date: 20220510
  Receipt Date: 20220619
  Transmission Date: 20220721
  Serious: Yes (Hospitalization)
  Sender: FDA-Public Use
  Company Number: US-ABBVIE-22K-163-4388251-00

PATIENT
  Sex: Female

DRUGS (3)
  1. IMBRUVICA [Suspect]
     Active Substance: IBRUTINIB
     Indication: Chronic lymphocytic leukaemia (in remission)
     Route: 048
  2. IMBRUVICA [Suspect]
     Active Substance: IBRUTINIB
     Route: 048
     Dates: start: 202201, end: 2022
  3. IMBRUVICA [Suspect]
     Active Substance: IBRUTINIB
     Route: 048
     Dates: start: 20220516

REACTIONS (8)
  - Gallbladder abscess [Unknown]
  - Sepsis [Recovered/Resolved]
  - Haemoglobin decreased [Unknown]
  - Dry skin [Recovering/Resolving]
  - Erythema [Recovering/Resolving]
  - Peripheral swelling [Unknown]
  - Infection [Unknown]
  - Weight decreased [Unknown]
